FAERS Safety Report 9308040 (Version 1)
Quarter: 2013Q2

REPORT INFORMATION
  Report Type: Spontaneous
  Country: US (occurrence: US)
  Receive Date: 20130524
  Receipt Date: 20130524
  Transmission Date: 20140414
  Serious: No
  Sender: FDA-Public Use
  Company Number: US-GLAXOSMITHKLINE-A1006939A

PATIENT
  Sex: Female

DRUGS (2)
  1. BACTROBAN [Suspect]
     Route: 061
  2. BACTRIM [Concomitant]
     Dosage: 1TAB TWICE PER DAY
     Route: 048

REACTIONS (1)
  - Drug ineffective [Unknown]
